FAERS Safety Report 17944570 (Version 7)
Quarter: 2021Q1

REPORT INFORMATION
  Report Type: Report from Study
  Country: FR (occurrence: FR)
  Receive Date: 20200625
  Receipt Date: 20210128
  Transmission Date: 20210419
  Serious: Yes (Life-Threatening, Hospitalization, Other)
  Sender: FDA-Public Use
  Company Number: FR-PFIZER INC-2018474502

PATIENT
  Age: 85 Year
  Sex: Male

DRUGS (20)
  1. AMPHOTERICIN B. [Suspect]
     Active Substance: AMPHOTERICIN B
     Indication: ANTIBIOTIC THERAPY
     Dosage: 15 DF, 1X/DAY (15 OTHER, QD)
     Route: 048
  2. FUROSEMIDE. [Suspect]
     Active Substance: FUROSEMIDE
     Indication: POLYURIA
     Dosage: 20 MG, DAILY DOSE
     Route: 048
  3. PANTOPRAZOLE [Concomitant]
     Active Substance: PANTOPRAZOLE
     Dosage: 40 MG, DAILY DOSE
     Route: 048
  4. POTASSIUM [Concomitant]
     Active Substance: POTASSIUM
     Dosage: 1200 MG, DAILY DOSE
     Route: 048
  5. ATORVASTATIN [Concomitant]
     Active Substance: ATORVASTATIN
     Indication: HYPERLIPIDAEMIA
     Dosage: 80 MILLIGRAM, QD
     Route: 048
  6. APIXABAN [Suspect]
     Active Substance: APIXABAN
     Dosage: 5 MG, DAILY DOSAGE
     Route: 048
     Dates: start: 20171023, end: 20180719
  7. IVABRADINE [Concomitant]
     Active Substance: IVABRADINE
     Dosage: 10 MG, DAILY DOSE
     Route: 048
  8. CYANOCOBALAMIN. [Concomitant]
     Active Substance: CYANOCOBALAMIN
     Indication: VITAMIN B12
     Dosage: 100000 MICROGRAM, QD
     Route: 048
     Dates: start: 201807, end: 201811
  9. AMPHOTERICIN B. [Suspect]
     Active Substance: AMPHOTERICIN B
     Indication: ANTIFUNGAL PROPHYLAXIS
  10. OXEPAM [Suspect]
     Active Substance: OXAZEPAM
     Indication: ANXIOLYTIC THERAPY
     Dosage: 10 MILLIGRAM
     Route: 048
  11. POTASSIUM [Concomitant]
     Active Substance: POTASSIUM
     Indication: HYPOKALAEMIA
     Dosage: 80 MILLIGRAM, QD
     Route: 048
     Dates: start: 201807, end: 201810
  12. POTASSIUM [Concomitant]
     Active Substance: POTASSIUM
     Dosage: 3600 MILLIGRAM, DAILY DOSE
     Route: 048
  13. TARDYFERON [Concomitant]
     Active Substance: FERROUS SULFATE
     Dosage: 80 MILLIGRAM
     Route: 048
     Dates: start: 201807, end: 201810
  14. RAMIPRIL. [Suspect]
     Active Substance: RAMIPRIL
     Dosage: 10 MILLIGRAM
     Route: 048
  15. CELIPROLOL [Suspect]
     Active Substance: CELIPROLOL
     Dosage: 200 MILLIGRAM
     Route: 048
  16. ASPIRINE PROTECT [Concomitant]
     Active Substance: ASPIRIN
     Dosage: 100 MG, DAILY DOSE
     Route: 048
  17. SPIRIVA [Concomitant]
     Active Substance: TIOTROPIUM BROMIDE MONOHYDRATE
     Indication: ANTASTHMATIC DRUG LEVEL
     Dosage: UNK
     Route: 048
  18. HYDROXYZINE [Concomitant]
     Active Substance: HYDROXYZINE HYDROCHLORIDE
     Indication: ANXIOLYTIC THERAPY
     Dosage: 25 MG, DAILY DOSE
     Route: 048
  19. MACROGOL [Concomitant]
     Active Substance: POLYETHYLENE GLYCOLS
     Indication: LAXATIVE SUPPORTIVE CARE
     Dosage: 1000 MILLIGRAM, QD
     Route: 048
     Dates: start: 201807
  20. COLECALCIFEROL [Concomitant]
     Active Substance: CHOLECALCIFEROL
     Indication: VITAMIN D
     Dosage: 1000 INTERNATIONAL UNIT, QD
     Route: 048
     Dates: start: 201807, end: 201809

REACTIONS (2)
  - Pulmonary oedema [Recovered/Resolved]
  - Acute coronary syndrome [Recovered/Resolved]

NARRATIVE: CASE EVENT DATE: 20180705
